FAERS Safety Report 12883586 (Version 1)
Quarter: 2016Q4

REPORT INFORMATION
  Report Type: Spontaneous
  Country: CO (occurrence: CO)
  Receive Date: 20161025
  Receipt Date: 20161025
  Transmission Date: 20170207
  Serious: Yes (Hospitalization, Other)
  Sender: FDA-Public Use
  Company Number: CO-AMGEN-COLSP2016147089

PATIENT
  Age: 34 Year
  Sex: Female
  Weight: 46.4 kg

DRUGS (2)
  1. ENBREL [Suspect]
     Active Substance: ETANERCEPT
     Indication: PRODUCT USED FOR UNKNOWN INDICATION
     Dosage: 50 MG, WEEKLY
     Route: 058
  2. PREDNISONE. [Suspect]
     Active Substance: PREDNISONE
     Indication: PRODUCT USED FOR UNKNOWN INDICATION
     Dosage: 10 MG, QD
     Route: 065

REACTIONS (17)
  - Vomiting [Unknown]
  - Fall [Unknown]
  - Synovitis [Recovering/Resolving]
  - Gastroduodenitis [Unknown]
  - Autoimmune hepatitis [Unknown]
  - Hypoaesthesia [Unknown]
  - Psoriatic arthropathy [Unknown]
  - Arthralgia [Recovering/Resolving]
  - Hepatic steatosis [Unknown]
  - Skin plaque [Unknown]
  - Aspartate aminotransferase increased [Unknown]
  - Erosive oesophagitis [Unknown]
  - Amylase increased [Unknown]
  - Gastrooesophageal sphincter insufficiency [Unknown]
  - Dizziness [Unknown]
  - Nausea [Unknown]
  - Psoriasis [Unknown]

NARRATIVE: CASE EVENT DATE: 20161005
